FAERS Safety Report 8928793 (Version 3)
Quarter: 2012Q4

REPORT INFORMATION
  Report Type: 
  Country: US (occurrence: US)
  Receive Date: 20121128
  Receipt Date: 20121226
  Transmission Date: 20130627
  Serious: No
  Sender: FDA-Public Use
  Company Number: US-PFIZER INC-2012279682

PATIENT
  Age: 79 Year
  Sex: Female

DRUGS (2)
  1. TOVIAZ [Suspect]
     Dosage: 4 mg, 1x/day
     Dates: end: 20120919
  2. TOVIAZ [Suspect]
     Dosage: 8 mg, 1x/day
     Route: 048
     Dates: start: 20120920

REACTIONS (2)
  - Dysuria [Unknown]
  - Constipation [Unknown]
